FAERS Safety Report 11771830 (Version 1)
Quarter: 2015Q4

REPORT INFORMATION
  Report Type: Spontaneous
  Country: US (occurrence: US)
  Receive Date: 20151124
  Receipt Date: 20151124
  Transmission Date: 20160304
  Serious: No
  Sender: FDA-Public Use
  Company Number: US-PFIZER INC-2015405320

PATIENT
  Sex: Female

DRUGS (2)
  1. ADVIL [Suspect]
     Active Substance: IBUPROFEN
     Dosage: UNK UNK, 2X/DAY
     Dates: start: 2015, end: 2015
  2. MELATONIN [Suspect]
     Active Substance: MELATONIN
     Dosage: UNK
     Dates: start: 2015, end: 2015

REACTIONS (2)
  - Drug withdrawal syndrome [Unknown]
  - Migraine [Unknown]
